FAERS Safety Report 19000337 (Version 1)
Quarter: 2021Q1

REPORT INFORMATION
  Report Type: Spontaneous
  Country: US (occurrence: US)
  Receive Date: 20210312
  Receipt Date: 20210312
  Transmission Date: 20210420
  Serious: Yes (Hospitalization)
  Sender: FDA-Public Use
  Company Number: US-PROCTER+GAMBLE-PH21001148

PATIENT

DRUGS (2)
  1. METAMUCIL THERAPY FOR REGULARITY [Suspect]
     Active Substance: PSYLLIUM HUSK
     Dosage: 2 SCOOP (POWDER FOR ORAL SOLUTION)
     Route: 048
  2. METAMUCIL THERAPY FOR REGULARITY [Suspect]
     Active Substance: PSYLLIUM HUSK
     Dosage: 1 SCOOP (POWDER FOR ORAL SOLUTION)
     Route: 048

REACTIONS (1)
  - Intestinal obstruction [Recovered/Resolved]
